FAERS Safety Report 22664281 (Version 2)
Quarter: 2025Q4

REPORT INFORMATION
  Report Type: Spontaneous
  Country: EU (occurrence: EU)
  Receive Date: 20230703
  Receipt Date: 20251021
  Transmission Date: 20260117
  Serious: Yes (Death)
  Sender: AUROBINDO
  Company Number: EU-HAMELN-2023HAM000740

PATIENT
  Age: 42 Year
  Sex: Male

DRUGS (9)
  1. FENTANYL [Suspect]
     Active Substance: FENTANYL
     Indication: Product used for unknown indication
     Dosage: UNK (12)
     Route: 065
     Dates: start: 20201106
  2. FENTANYL [Suspect]
     Active Substance: FENTANYL
     Dosage: UNK
     Route: 065
     Dates: start: 20201106
  3. LORAZEPAM [Suspect]
     Active Substance: LORAZEPAM
     Indication: Product used for unknown indication
     Dosage: UNK (2MG SL 3DD)
     Route: 065
     Dates: start: 20201106
  4. MORPHINE [Suspect]
     Active Substance: MORPHINE
     Indication: Dyspnoea
     Dosage: UNK (6 DD 5 MG SC)
     Route: 058
     Dates: start: 20201106
  5. MIDAZOLAM [Suspect]
     Active Substance: MIDAZOLAM
     Indication: Restlessness
     Dosage: 5 MILLIGRAM, TWO TIMES A DAY
     Route: 058
     Dates: start: 20201106
  6. MIDAZOLAM [Suspect]
     Active Substance: MIDAZOLAM
     Dosage: 10 MILLIGRAM (10 MG SC ZN 6DD)
     Route: 058
     Dates: start: 20201106
  7. OXYCODONE [Suspect]
     Active Substance: OXYCODONE
     Indication: Pain
     Dosage: UNK (1 OXYCODONE ZN)
     Route: 065
     Dates: start: 20201102
  8. HALDOL [Suspect]
     Active Substance: HALOPERIDOL
     Indication: Product used for unknown indication
     Dosage: 2.5 MILLIGRAM, FOUR TIMES/DAY
     Route: 058
     Dates: start: 20201106
  9. NICOTINELL [Concomitant]
     Active Substance: NICOTINE
     Indication: Nicotine dependence
     Dosage: UNK (1 D1)
     Route: 062
     Dates: start: 20201106

REACTIONS (3)
  - Condition aggravated [Fatal]
  - Product prescribing issue [Fatal]
  - Wrong product administered [Fatal]
